FAERS Safety Report 14522024 (Version 1)
Quarter: 2018Q1

REPORT INFORMATION
  Report Type: Spontaneous
  Country: US (occurrence: US)
  Receive Date: 20180212
  Receipt Date: 20180212
  Transmission Date: 20180509
  Serious: Yes (Disabling, Other)
  Sender: FDA-Public Use
  Company Number: US-BAUSCH-BL-2018-002891

PATIENT
  Age: 5 Decade
  Sex: Female

DRUGS (1)
  1. ATIVAN [Suspect]
     Active Substance: LORAZEPAM
     Indication: INSOMNIA
     Route: 048
     Dates: start: 2009, end: 2015

REACTIONS (8)
  - Ill-defined disorder [Not Recovered/Not Resolved]
  - Skin burning sensation [Not Recovered/Not Resolved]
  - Bedridden [Not Recovered/Not Resolved]
  - Thyroid disorder [Not Recovered/Not Resolved]
  - Drug withdrawal syndrome [Not Recovered/Not Resolved]
  - Brain injury [Not Recovered/Not Resolved]
  - Spinal pain [Not Recovered/Not Resolved]
  - Spinal disorder [Not Recovered/Not Resolved]
